FAERS Safety Report 5922530-3 (Version None)
Quarter: 2008Q4

REPORT INFORMATION
  Report Type: 
  Country: None (occurrence: None)
  Receive Date: 20081017
  Receipt Date: 20081008
  Transmission Date: 20090506
  Serious: Yes (Hospitalization, Other)
  Sender: FDA-Public Use
  Company Number: PHHY2008PH23351

PATIENT
  Sex: Male
  Weight: 49 kg

DRUGS (1)
  1. TRILEPTAL [Suspect]
     Indication: EPILEPSY
     Dosage: 300 MG, BID
     Route: 048
     Dates: start: 20080913

REACTIONS (3)
  - RASH MACULO-PAPULAR [None]
  - URTICARIA [None]
  - WHEEZING [None]
